FAERS Safety Report 6405126-9 (Version None)
Quarter: 2009Q4

REPORT INFORMATION
  Report Type: 
  Country: None (occurrence: None)
  Receive Date: 20091013
  Receipt Date: 20090930
  Transmission Date: 20100525
  Serious: Yes (Other)
  Sender: FDA-Public Use
  Company Number: 2009-01572

PATIENT
  Age: 54 Year
  Sex: Female

DRUGS (2)
  1. VELCADE [Suspect]
     Indication: AMYLOIDOSIS
     Dosage: 2.2 MG, INTRAVENOUS
     Route: 042
     Dates: start: 20090224, end: 20090619
  2. VELCADE [Suspect]

REACTIONS (4)
  - AMYLOIDOSIS [None]
  - DISEASE PROGRESSION [None]
  - HYPOPROTEINAEMIA [None]
  - PROTEINURIA [None]
